FAERS Safety Report 7161026-0 (Version None)
Quarter: 2010Q4

REPORT INFORMATION
  Report Type: 
  Country: None (occurrence: None)
  Receive Date: 20101214
  Receipt Date: 20091202
  Transmission Date: 20110411
  Serious: No
  Sender: FDA-Public Use
  Company Number: US-AMGEN-KDL377976

PATIENT

DRUGS (7)
  1. ENBREL [Suspect]
     Indication: PRODUCT USED FOR UNKNOWN INDICATION
     Dosage: 50 MG, QWK
     Route: 058
  2. ETODOLAC [Concomitant]
     Dosage: 300 MG, UNK
  3. METHOTREXATE [Concomitant]
     Dosage: 2.5 MG, UNK
  4. LEVOTHYROXINE SODIUM [Concomitant]
     Dosage: 50 A?G, UNK
  5. FOLIC ACID [Concomitant]
     Dosage: 1 MG, UNK
  6. FISH OIL [Concomitant]
  7. ACETAMINOPHEN [Concomitant]
     Dosage: 500 MG, UNK

REACTIONS (2)
  - ALOPECIA [None]
  - SINUS CONGESTION [None]
